FAERS Safety Report 7400613-9 (Version None)
Quarter: 2011Q2

REPORT INFORMATION
  Report Type: 
  Country: None (occurrence: None)
  Receive Date: 20110407
  Receipt Date: 20101207
  Transmission Date: 20111010
  Serious: Yes (Death, Hospitalization)
  Sender: FDA-Public Use
  Company Number: JP-BAYER-201012756BYL

PATIENT
  Sex: Male
  Weight: 63 kg

DRUGS (6)
  1. MORPHINE HYDROCHLORIDE [Concomitant]
     Indication: CANCER PAIN
     Dosage: UNK
     Route: 042
     Dates: start: 20100525, end: 20100613
  2. NEXAVAR [Suspect]
     Dosage: 600 MG, QD
     Route: 048
     Dates: start: 20100212, end: 20100301
  3. URSO 250 [Concomitant]
     Indication: PROPHYLAXIS
     Dosage: 600 MG, QD
     Route: 048
     Dates: end: 20100524
  4. NEXAVAR [Suspect]
     Dosage: 400 MG, QD
     Dates: start: 20100302, end: 20100524
  5. NEXAVAR [Suspect]
     Indication: HEPATIC NEOPLASM MALIGNANT
     Dosage: 400 MG, BID
     Route: 048
     Dates: start: 20100125, end: 20100211
  6. MYSLEE [Concomitant]
     Indication: INSOMNIA
     Dosage: 5 MG, QD
     Route: 048
     Dates: end: 20100524

REACTIONS (2)
  - HEPATIC FAILURE [None]
  - GASTROINTESTINAL HAEMORRHAGE [None]
